FAERS Safety Report 17487366 (Version 11)
Quarter: 2025Q1

REPORT INFORMATION
  Report Type: Report from Study
  Country: US (occurrence: US)
  Receive Date: 20200303
  Receipt Date: 20250110
  Transmission Date: 20250409
  Serious: Yes (Hospitalization, Other)
  Sender: INCYTE
  Company Number: US-INCYTE CORPORATION-2020IN001131

PATIENT

DRUGS (25)
  1. JAKAFI [Suspect]
     Active Substance: RUXOLITINIB
     Indication: Polycythaemia vera
     Route: 065
     Dates: start: 2020
  2. JAKAFI [Suspect]
     Active Substance: RUXOLITINIB
     Indication: Myelofibrosis
     Dosage: 10 MILLIGRAM, BID
     Route: 048
  3. JAKAFI [Suspect]
     Active Substance: RUXOLITINIB
     Dosage: 10 MILLIGRAM, BID
     Route: 048
  4. JAKAFI [Suspect]
     Active Substance: RUXOLITINIB
     Dosage: 10 MILLIGRAM, BID
     Route: 048
  5. JAKAFI [Suspect]
     Active Substance: RUXOLITINIB
     Dosage: 10 MILLIGRAM, BID
     Route: 048
  6. JAKAFI [Suspect]
     Active Substance: RUXOLITINIB
     Dosage: 10 MILLIGRAM, BID
     Route: 048
  7. JAKAFI [Suspect]
     Active Substance: RUXOLITINIB
     Dosage: 10 MILLIGRAM, BID
     Route: 048
  8. JAKAFI [Suspect]
     Active Substance: RUXOLITINIB
     Dosage: 10 MILLIGRAM, BID
     Route: 048
  9. JAKAFI [Suspect]
     Active Substance: RUXOLITINIB
     Dosage: 10 MILLIGRAM, BID
     Route: 048
  10. JAKAFI [Suspect]
     Active Substance: RUXOLITINIB
     Route: 048
     Dates: start: 20241205
  11. CEFDINIR [Suspect]
     Active Substance: CEFDINIR
     Indication: Product used for unknown indication
     Route: 065
  12. ASPIRIN [Suspect]
     Active Substance: ASPIRIN
     Indication: Product used for unknown indication
     Route: 065
  13. ASPIRIN [Suspect]
     Active Substance: ASPIRIN
     Route: 048
  14. TYLENOL WITH CODEINE [Concomitant]
     Active Substance: ACETAMINOPHEN\CODEINE PHOSPHATE
     Indication: Product used for unknown indication
     Route: 065
  15. HERBALS\TURMERIC [Concomitant]
     Active Substance: HERBALS\TURMERIC
     Indication: Product used for unknown indication
     Route: 065
  16. VITAMIN C [Concomitant]
     Active Substance: ASCORBIC ACID
     Indication: Product used for unknown indication
     Route: 065
  17. ADVIL [Concomitant]
     Active Substance: IBUPROFEN
     Indication: Product used for unknown indication
     Route: 065
  18. CYANOCOBALAMIN [Concomitant]
     Active Substance: CYANOCOBALAMIN
     Indication: Product used for unknown indication
     Route: 065
  19. VITAMIN D3 [Concomitant]
     Active Substance: CHOLECALCIFEROL
     Indication: Product used for unknown indication
     Route: 065
  20. HYDROXYUREA [Concomitant]
     Active Substance: HYDROXYUREA
     Indication: Product used for unknown indication
     Route: 065
  21. HYDROCODONE [Concomitant]
     Active Substance: HYDROCODONE
     Indication: Product used for unknown indication
     Route: 065
  22. MAGNESIUM [Concomitant]
     Active Substance: MAGNESIUM
     Indication: Product used for unknown indication
     Route: 065
  23. ALPRAZOLAM [Concomitant]
     Active Substance: ALPRAZOLAM
     Indication: Product used for unknown indication
     Route: 065
  24. HERBAL NOS;VITAMINS NOS [Concomitant]
     Indication: Product used for unknown indication
     Route: 065
  25. TYLENOL [Concomitant]
     Active Substance: ACETAMINOPHEN
     Indication: Product used for unknown indication
     Route: 065

REACTIONS (58)
  - Nephrolithiasis [Not Recovered/Not Resolved]
  - Pain in extremity [Unknown]
  - Squamous cell carcinoma [Unknown]
  - Basal cell carcinoma [Not Recovered/Not Resolved]
  - Post procedural haemorrhage [Recovered/Resolved]
  - Skin cancer [Not Recovered/Not Resolved]
  - Precancerous condition [Unknown]
  - Sepsis [Recovering/Resolving]
  - Dizziness [Unknown]
  - Scab [Unknown]
  - Fatigue [Unknown]
  - Asthenia [Recovering/Resolving]
  - Laboratory test abnormal [Recovering/Resolving]
  - Rash pruritic [Unknown]
  - Skin papilloma [Not Recovered/Not Resolved]
  - Pigmentation disorder [Unknown]
  - Visual impairment [Not Recovered/Not Resolved]
  - Platelet count abnormal [Not Recovered/Not Resolved]
  - Crying [Not Recovered/Not Resolved]
  - Stress [Not Recovered/Not Resolved]
  - Pruritus [Not Recovered/Not Resolved]
  - Low density lipoprotein increased [Unknown]
  - Hyperhidrosis [Unknown]
  - Miliaria [Unknown]
  - Therapeutic response unexpected [Unknown]
  - Tinnitus [Unknown]
  - Hypoacusis [Unknown]
  - Depressed mood [Unknown]
  - Vision blurred [Unknown]
  - Intervertebral disc protrusion [Unknown]
  - Migraine with aura [Unknown]
  - Wound [Unknown]
  - Impaired healing [Unknown]
  - Wound haemorrhage [Unknown]
  - Pain [Unknown]
  - Agitation [Unknown]
  - Feeling abnormal [Not Recovered/Not Resolved]
  - Spinal disorder [Unknown]
  - Nerve compression [Unknown]
  - Palpitations [Unknown]
  - Drug hypersensitivity [Unknown]
  - Back pain [Unknown]
  - Peripheral swelling [Unknown]
  - Blood urine present [Unknown]
  - Flank pain [Unknown]
  - Complication of device removal [Unknown]
  - Nasal congestion [Unknown]
  - Back disorder [Unknown]
  - Neck pain [Not Recovered/Not Resolved]
  - Dysarthria [Not Recovered/Not Resolved]
  - Blood cholesterol increased [Not Recovered/Not Resolved]
  - Nausea [Unknown]
  - Muscle spasms [Unknown]
  - Anaemia [Unknown]
  - Blood pressure increased [Unknown]
  - Contusion [Unknown]
  - Urinary tract infection [Unknown]
  - Diarrhoea [Unknown]

NARRATIVE: CASE EVENT DATE: 20200301
